FAERS Safety Report 17864061 (Version 2)
Quarter: 2020Q3

REPORT INFORMATION
  Report Type: Report from Study
  Country: US (occurrence: US)
  Receive Date: 20200605
  Receipt Date: 20200724
  Transmission Date: 20201103
  Serious: Yes (Death, Other)
  Sender: FDA-Public Use
  Company Number: US-ACADIA PHARMACEUTICALS INC.-ACA-2020-PIM-001780

PATIENT
  Age: 76 Year
  Sex: Female

DRUGS (25)
  1. LOPRESSOR [Concomitant]
     Active Substance: METOPROLOL TARTRATE
     Indication: ARTERIOSCLEROSIS CORONARY ARTERY
  2. ASPIRIN 81 [Concomitant]
     Active Substance: ASPIRIN
     Indication: PRODUCT USED FOR UNKNOWN INDICATION
     Dosage: 81 MILLIGRAM, QD
  3. ELIQUIS [Concomitant]
     Active Substance: APIXABAN
     Indication: ARTERIOSCLEROSIS CORONARY ARTERY
  4. LOPRESSOR [Concomitant]
     Active Substance: METOPROLOL TARTRATE
     Indication: ATRIAL FIBRILLATION
     Dosage: 25 MILLIGRAM, BID
  5. NUPLAZID [Suspect]
     Active Substance: PIMAVANSERIN TARTRATE
     Indication: PARKINSON^S DISEASE PSYCHOSIS
     Dosage: 10 MILLIGRAM, QD
     Route: 048
     Dates: start: 20191216
  6. NUPLAZID [Suspect]
     Active Substance: PIMAVANSERIN TARTRATE
     Indication: HALLUCINATION
  7. NUPLAZID [Suspect]
     Active Substance: PIMAVANSERIN TARTRATE
     Indication: DELUSION
  8. ELIQUIS [Concomitant]
     Active Substance: APIXABAN
     Indication: CHRONIC OBSTRUCTIVE PULMONARY DISEASE
  9. LASIX [Concomitant]
     Active Substance: FUROSEMIDE
     Indication: CHRONIC OBSTRUCTIVE PULMONARY DISEASE
  10. LOPRESSOR [Concomitant]
     Active Substance: METOPROLOL TARTRATE
     Indication: CHRONIC OBSTRUCTIVE PULMONARY DISEASE
  11. LOSARTAN. [Concomitant]
     Active Substance: LOSARTAN
     Indication: HYPERTENSION
  12. ATORVASTATIN [Concomitant]
     Active Substance: ATORVASTATIN
     Indication: ATRIAL FIBRILLATION
     Dosage: 20 MILLIGRAM, QD
  13. ATORVASTATIN [Concomitant]
     Active Substance: ATORVASTATIN
     Indication: CHRONIC OBSTRUCTIVE PULMONARY DISEASE
  14. SINEMET [Concomitant]
     Active Substance: CARBIDOPA\LEVODOPA
     Indication: PRODUCT USED FOR UNKNOWN INDICATION
     Dosage: 25/100 2 TABS TID
  15. ELIQUIS [Concomitant]
     Active Substance: APIXABAN
     Indication: HYPERTENSION
  16. LASIX [Concomitant]
     Active Substance: FUROSEMIDE
     Indication: ATRIAL FIBRILLATION
     Dosage: 20 MILLIGRAM, QD
  17. LOSARTAN. [Concomitant]
     Active Substance: LOSARTAN
     Indication: CHRONIC OBSTRUCTIVE PULMONARY DISEASE
  18. ATORVASTATIN [Concomitant]
     Active Substance: ATORVASTATIN
     Indication: HYPERTENSION
  19. LOSARTAN. [Concomitant]
     Active Substance: LOSARTAN
     Indication: ARTERIOSCLEROSIS CORONARY ARTERY
  20. ELIQUIS [Concomitant]
     Active Substance: APIXABAN
     Indication: ATRIAL FIBRILLATION
     Dosage: 5 MILLIGRAM, BID
  21. LASIX [Concomitant]
     Active Substance: FUROSEMIDE
     Indication: HYPERTENSION
  22. LOPRESSOR [Concomitant]
     Active Substance: METOPROLOL TARTRATE
     Indication: HYPERTENSION
  23. LASIX [Concomitant]
     Active Substance: FUROSEMIDE
     Indication: ARTERIOSCLEROSIS CORONARY ARTERY
  24. LOSARTAN. [Concomitant]
     Active Substance: LOSARTAN
     Indication: ATRIAL FIBRILLATION
     Dosage: 100 MILLIGRAM, QD
  25. ATORVASTATIN [Concomitant]
     Active Substance: ATORVASTATIN
     Indication: ARTERIOSCLEROSIS CORONARY ARTERY

REACTIONS (5)
  - Atrial fibrillation [Fatal]
  - Hypertension [Recovered/Resolved]
  - Chronic obstructive pulmonary disease [Recovered/Resolved]
  - Arteriosclerosis coronary artery [Recovered/Resolved]
  - Prescribed underdose [Unknown]

NARRATIVE: CASE EVENT DATE: 20191216
